FAERS Safety Report 7386996-7 (Version None)
Quarter: 2011Q1

REPORT INFORMATION
  Report Type: 
  Country: None (occurrence: None)
  Receive Date: 20110331
  Receipt Date: 20110324
  Transmission Date: 20110831
  Serious: Yes (Other)
  Sender: FDA-Public Use
  Company Number: IE-PFIZER INC-2011033993

PATIENT
  Age: 16 Year
  Sex: Female

DRUGS (5)
  1. CLOPIDOGREL [Concomitant]
     Indication: CEREBROVASCULAR ACCIDENT
     Dosage: 75 MG, UNK
  2. SOLU-MEDRONE [Suspect]
     Indication: IMMUNOSUPPRESSION
     Dosage: 500 MG, STAT
     Route: 042
     Dates: start: 20110130
  3. ACETYLSALICYLIC ACID [Concomitant]
     Indication: CEREBROVASCULAR ACCIDENT
     Dosage: 75 MG, UNK
  4. FOLIC ACID [Concomitant]
     Dosage: 5 MG, UNK
  5. OMEPRAZOLE [Concomitant]
     Dosage: 20 MG, UNK

REACTIONS (6)
  - CHEST DISCOMFORT [None]
  - TACHYCARDIA [None]
  - URTICARIA [None]
  - RASH [None]
  - SWELLING FACE [None]
  - HYPOTENSION [None]
